FAERS Safety Report 8904148 (Version 2)
Quarter: 2012Q4

REPORT INFORMATION
  Report Type: 
  Country: US (occurrence: US)
  Receive Date: 20121112
  Receipt Date: 20121227
  Transmission Date: 20130627
  Serious: Yes (Other)
  Sender: FDA-Public Use
  Company Number: US-CELGENEUS-163-21880-12111107

PATIENT
  Sex: Male

DRUGS (16)
  1. REVLIMID [Suspect]
     Indication: AMYLOIDOSIS
     Dosage: 15 Milligram
     Route: 048
     Dates: start: 200911, end: 2011
  2. REVLIMID [Suspect]
     Dosage: 10 Milligram
     Route: 048
     Dates: start: 201104
  3. REGLAN [Concomitant]
     Indication: NAUSEA
     Dosage: 10 Milligram
     Route: 065
  4. PRILOSEC [Concomitant]
     Indication: DRUG USE FOR UNKNOWN INDICATION
     Dosage: 20 Milligram
     Route: 065
  5. LORATADINE [Concomitant]
     Indication: MULTIPLE ALLERGIES
     Dosage: 10 Milligram
     Route: 048
  6. RENAGEL [Concomitant]
     Indication: CHRONIC RENAL FAILURE
     Dosage: 800 Milligram
     Route: 065
  7. FOLIC ACID [Concomitant]
     Indication: DRUG USE FOR UNKNOWN INDICATION
     Route: 065
  8. LOPERAMIDE [Concomitant]
     Indication: DRUG USE FOR UNKNOWN INDICATION
     Dosage: 2 Milligram
     Route: 065
  9. CENTRUM SILVER [Concomitant]
     Indication: DRUG USE FOR UNKNOWN INDICATION
     Route: 065
  10. CALCIUM +D [Concomitant]
     Indication: DRUG USE FOR UNKNOWN INDICATION
     Dosage: 600 Milligram
     Route: 065
  11. ASA [Concomitant]
     Indication: DRUG USE FOR UNKNOWN INDICATION
     Dosage: 325 Milligram
     Route: 065
  12. MAGNESIUM OXIDE [Concomitant]
     Indication: CHRONIC RENAL FAILURE
     Dosage: 2 tablets
     Route: 048
  13. SODIUM BICARBONATE [Concomitant]
     Indication: CHRONIC RENAL FAILURE
     Dosage: 650 Milligram
     Route: 048
  14. MVI [Concomitant]
     Indication: DRUG USE FOR UNKNOWN INDICATION
     Dosage: 1 Tablet
     Route: 048
  15. OMEPRAZOLE [Concomitant]
     Indication: GERD
     Dosage: 20 Milligram
     Route: 048
  16. CALCIUM CITRATE [Concomitant]
     Indication: CHRONIC RENAL FAILURE
     Dosage: 3 tablets
     Route: 048

REACTIONS (3)
  - Convulsion [Recovered/Resolved]
  - Amyloidosis [Recovered/Resolved]
  - Respiratory tract infection fungal [Recovered/Resolved]
